FAERS Safety Report 25817295 (Version 2)
Quarter: 2025Q3

REPORT INFORMATION
  Report Type: Spontaneous
  Country: US (occurrence: US)
  Receive Date: 20250918
  Receipt Date: 20250923
  Transmission Date: 20251021
  Serious: Yes (Hospitalization, Other)
  Sender: PFIZER
  Company Number: US-PFIZER INC-202500183757

PATIENT
  Age: 77 Year
  Sex: Female

DRUGS (2)
  1. IBRANCE [Suspect]
     Active Substance: PALBOCICLIB
     Route: 048
     Dates: end: 202509
  2. PROTONIX [Concomitant]
     Active Substance: PANTOPRAZOLE SODIUM
     Dosage: TAKE 1 TABLET (40 MG TOTAL) BY MOUTH EVERY MORNING BEFORE BREAKFAST FOR 14 DAYS
     Route: 048
     Dates: end: 20250914

REACTIONS (1)
  - Toe operation [Unknown]
